FAERS Safety Report 13287778 (Version 5)
Quarter: 2018Q1

REPORT INFORMATION
  Report Type: Report from Study
  Country: US (occurrence: US)
  Receive Date: 20170302
  Receipt Date: 20180309
  Transmission Date: 20180508
  Serious: No
  Sender: FDA-Public Use
  Company Number: PHEH2017US006107

PATIENT
  Sex: Female

DRUGS (3)
  1. AFINITOR [Suspect]
     Active Substance: EVEROLIMUS
     Dosage: 15 MG, QD
     Route: 065
  2. AFINITOR [Suspect]
     Active Substance: EVEROLIMUS
     Indication: ANGIOMYOLIPOMA
     Dosage: 5 MG, QD
     Route: 048
  3. AFINITOR [Suspect]
     Active Substance: EVEROLIMUS
     Dosage: 7.5 MG, QD
     Route: 048
     Dates: start: 20170208

REACTIONS (8)
  - Drug level decreased [Unknown]
  - Headache [Unknown]
  - Acne [Unknown]
  - Pain [Unknown]
  - Peripheral swelling [Unknown]
  - Feeling abnormal [Unknown]
  - Eye pain [Unknown]
  - Speech disorder [Unknown]
